FAERS Safety Report 14479084 (Version 3)
Quarter: 2022Q1

REPORT INFORMATION
  Report Type: Other
  Country: DE (occurrence: DE)
  Receive Date: 20180202
  Receipt Date: 20220309
  Transmission Date: 20220424
  Serious: Yes (Death, Life-Threatening, Hospitalization, Other)
  Sender: FDA-Public Use
  Company Number: DE-MACLEODS PHARMACEUTICALS US LTD-MAC2018009027

PATIENT

DRUGS (24)
  1. DOLUTEGRAVIR [Interacting]
     Active Substance: DOLUTEGRAVIR
     Indication: HIV infection
     Dosage: UNK
     Route: 065
  2. TENOFOVIR [Interacting]
     Active Substance: TENOFOVIR
     Indication: HIV infection
     Dosage: UNK
     Route: 065
  3. METOPROLOL [Interacting]
     Active Substance: METOPROLOL
     Indication: Hypertension
     Dosage: UNK
     Route: 065
     Dates: start: 2010
  4. METOPROLOL [Interacting]
     Active Substance: METOPROLOL
     Dosage: 95 MG, QD (START DATE: SEP 2014 AND STOP DATE: JUN 2015)
     Route: 065
  5. PANTOPRAZOLE [Interacting]
     Active Substance: PANTOPRAZOLE
     Indication: Gastrooesophageal reflux disease
     Dosage: UNK (START DATE-2010)
     Route: 065
  6. PANTOPRAZOLE [Interacting]
     Active Substance: PANTOPRAZOLE
     Indication: Gastrooesophageal reflux disease
     Dosage: UNKUNK, 1X20-40 MG OVER YEARS
     Route: 048
     Dates: start: 20150327, end: 20150416
  7. ASPIRIN [Interacting]
     Active Substance: ASPIRIN
     Indication: Atrial fibrillation
     Dosage: UNK (START DATE: 2010)
     Route: 065
  8. ASPIRIN [Interacting]
     Active Substance: ASPIRIN
     Dosage: 100 MG, QD
     Route: 065
  9. EMTRICITABINE [Interacting]
     Active Substance: EMTRICITABINE
     Indication: HIV infection
     Dosage: UNK
     Route: 065
  10. SIMVASTATIN [Interacting]
     Active Substance: SIMVASTATIN
     Indication: Atrial fibrillation
     Dosage: UNK (START DATE:2010)
     Route: 065
  11. SIMVASTATIN [Interacting]
     Active Substance: SIMVASTATIN
     Dosage: 40 MG, QD
     Route: 048
     Dates: end: 20150416
  12. TRUVADA [Interacting]
     Active Substance: EMTRICITABINE\TENOFOVIR DISOPROXIL FUMARATE
     Indication: HIV infection
     Dosage: 1 DF, QD
     Route: 048
     Dates: start: 20140919, end: 20150414
  13. TIVICAY [Interacting]
     Active Substance: DOLUTEGRAVIR SODIUM
     Indication: HIV infection
     Dosage: 50 MG, QD, TIME INTERVAL BETWEEN BEGINNING OF DRUG ADMINISTRATION AND START OF REACTION/E
     Route: 048
     Dates: start: 20140919, end: 20150414
  14. CEFTRIAXONE [Concomitant]
     Active Substance: CEFTRIAXONE
     Indication: Product used for unknown indication
     Dosage: UNK
     Route: 065
     Dates: start: 20150105
  15. OMEPRAZOLE [Concomitant]
     Active Substance: OMEPRAZOLE
     Indication: Prophylaxis
     Dosage: UNK (START DATE:SEP 2014 AND STOP DATE:JUN 2015)
     Route: 065
  16. OMEPRAZOLE [Concomitant]
     Active Substance: OMEPRAZOLE
     Indication: Gastritis
  17. FLUCONAZOLE [Concomitant]
     Active Substance: FLUCONAZOLE
     Indication: Product used for unknown indication
     Dosage: UNK
     Route: 065
  18. KALETRA [Concomitant]
     Active Substance: LOPINAVIR\RITONAVIR
     Indication: HIV infection
     Dosage: UNK
     Route: 016
     Dates: start: 20150508
  19. CANDIO HERMAL [Concomitant]
     Indication: Oesophageal candidiasis
     Dosage: UNK, OINTMENT (START DATE: MAY 2015 AND STOP DATE: JUN 2015)
     Route: 061
  20. CANDIO HERMAL [Concomitant]
     Dosage: UNK, OINTMENT, UNK, OINTMENT (START DATE: SEP 2014 AND STOP DATE: NOV 2014)
     Route: 061
     Dates: start: 201409, end: 201411
  21. MEROPENEM [Concomitant]
     Active Substance: MEROPENEM
     Indication: Product used for unknown indication
     Dosage: UNK
     Route: 065
     Dates: start: 20150525
  22. PIPERACILLIN AND TAZOBACTAM [Concomitant]
     Active Substance: PIPERACILLIN SODIUM\TAZOBACTAM SODIUM
     Indication: Product used for unknown indication
     Dosage: UNK
     Route: 065
  23. SULFAMETHOXAZOLE\TRIMETHOPRIM [Concomitant]
     Active Substance: SULFAMETHOXAZOLE\TRIMETHOPRIM
     Indication: Product used for unknown indication
     Dosage: UNK (START DATE: SEP 2014 AND STOP DATE: APR 2015)
     Route: 065
  24. SULFAMETHOXAZOLE\TRIMETHOPRIM [Concomitant]
     Active Substance: SULFAMETHOXAZOLE\TRIMETHOPRIM
     Indication: Prophylaxis

REACTIONS (55)
  - Multiple organ dysfunction syndrome [Fatal]
  - Hepatic failure [Fatal]
  - Hepatitis [Fatal]
  - Fatigue [Fatal]
  - Disseminated intravascular coagulation [Fatal]
  - Chromaturia [Fatal]
  - Faeces pale [Fatal]
  - Upper gastrointestinal haemorrhage [Fatal]
  - Hypovolaemic shock [Fatal]
  - Neutropenic sepsis [Fatal]
  - Pneumonia [Fatal]
  - Cholangitis [Fatal]
  - Ocular icterus [Fatal]
  - Drug-induced liver injury [Fatal]
  - Renal failure [Fatal]
  - Circulatory collapse [Fatal]
  - General physical health deterioration [Fatal]
  - Hepatic enzyme increased [Fatal]
  - Jaundice [Fatal]
  - Coagulopathy [Fatal]
  - Weight decreased [Fatal]
  - Hepatitis fulminant [Not Recovered/Not Resolved]
  - Hepatic necrosis [Unknown]
  - Neutropenia [Unknown]
  - Hepatitis cholestatic [Unknown]
  - Hepatomegaly [Unknown]
  - Hepatic function abnormal [Unknown]
  - Asthenia [Unknown]
  - Nausea [Unknown]
  - Cholestasis [Unknown]
  - Cholangitis [Not Recovered/Not Resolved]
  - Hepatotoxicity [Not Recovered/Not Resolved]
  - Decreased appetite [Unknown]
  - Confusional state [Unknown]
  - Sepsis [Unknown]
  - Acidosis [Unknown]
  - Metabolic acidosis [Unknown]
  - Pyrexia [Unknown]
  - Hypoxia [Unknown]
  - Splenomegaly [Unknown]
  - Abdominal pain [Unknown]
  - Portal fibrosis [Unknown]
  - Abdominal pain upper [Unknown]
  - Candida infection [Unknown]
  - Shock haemorrhagic [Unknown]
  - Duodenal ulcer [Unknown]
  - Hyperferritinaemia [Unknown]
  - Bone marrow failure [Recovered/Resolved]
  - Leukopenia [Unknown]
  - Agranulocytosis [Unknown]
  - Thrombocytopenia [Unknown]
  - Pancytopenia [Unknown]
  - Lymphadenopathy [Unknown]
  - Pneumonia bacterial [Unknown]
  - Drug interaction [Unknown]

NARRATIVE: CASE EVENT DATE: 20150324
